FAERS Safety Report 21333268 (Version 27)
Quarter: 2024Q3

REPORT INFORMATION
  Report Type: Report from Study
  Country: GT (occurrence: GT)
  Receive Date: 20220914
  Receipt Date: 20240808
  Transmission Date: 20241016
  Serious: Yes (Hospitalization, Disabling, Other)
  Sender: NOVARTIS
  Company Number: GT-NOVARTISPH-NVSC2022GT205839

PATIENT
  Age: 49 Year
  Sex: Female

DRUGS (5)
  1. KISQALI [Suspect]
     Active Substance: RIBOCICLIB
     Indication: Breast cancer
     Dosage: 600 MG, QD
     Route: 048
     Dates: start: 202002
  2. KISQALI [Suspect]
     Active Substance: RIBOCICLIB
     Dosage: 600 MG, QD
     Route: 048
     Dates: start: 202008
  3. KISQALI [Suspect]
     Active Substance: RIBOCICLIB
     Dosage: 600 MG, QD
     Route: 048
     Dates: start: 20200909, end: 20231019
  4. LETROZOLE [Suspect]
     Active Substance: LETROZOLE
     Indication: Product used for unknown indication
     Dosage: UNK
     Route: 065
  5. ZOLEDRONIC ACID [Suspect]
     Active Substance: ZOLEDRONIC ACID
     Indication: Product used for unknown indication
     Dosage: UNK, Q3MO
     Route: 065

REACTIONS (44)
  - Dyspnoea [Unknown]
  - Metastases to nervous system [Unknown]
  - Metastases to lymph nodes [Unknown]
  - Gait inability [Unknown]
  - Haematology test abnormal [Unknown]
  - Pyrexia [Unknown]
  - Positron emission tomogram abnormal [Unknown]
  - Metastases to bone [Unknown]
  - White blood cell count decreased [Unknown]
  - Neutropenia [Unknown]
  - Muscle atrophy [Unknown]
  - Paraesthesia [Recovering/Resolving]
  - Pain [Unknown]
  - Arthralgia [Not Recovered/Not Resolved]
  - Skin atrophy [Unknown]
  - Discomfort [Unknown]
  - Ephelides [Recovering/Resolving]
  - Decreased immune responsiveness [Unknown]
  - Abdominal discomfort [Recovering/Resolving]
  - Weight decreased [Unknown]
  - Pain in extremity [Not Recovered/Not Resolved]
  - Depressed mood [Unknown]
  - Insomnia [Unknown]
  - Malaise [Unknown]
  - Gastrooesophageal reflux disease [Unknown]
  - Disorientation [Unknown]
  - Illness [Unknown]
  - Abdominal pain upper [Unknown]
  - Decreased appetite [Unknown]
  - Dry skin [Unknown]
  - Alopecia [Unknown]
  - Nausea [Unknown]
  - Fatigue [Unknown]
  - Anaemia [Unknown]
  - Peripheral swelling [Unknown]
  - Haemoglobin decreased [Unknown]
  - Immunology test abnormal [Unknown]
  - Product availability issue [Unknown]
  - Neck pain [Unknown]
  - Inflammation [Not Recovered/Not Resolved]
  - Somnolence [Unknown]
  - Neuralgia [Recovering/Resolving]
  - Eyelid ptosis [Unknown]
  - Back pain [Unknown]

NARRATIVE: CASE EVENT DATE: 20200901
